FAERS Safety Report 4489716-9 (Version None)
Quarter: 2004Q4

REPORT INFORMATION
  Report Type: 
  Country: None (occurrence: None)
  Receive Date: 20041101
  Receipt Date: 20041027
  Transmission Date: 20050328
  Serious: Yes (Hospitalization)
  Sender: FDA-Public Use
  Company Number: FR-MERCK-0410AUS00300

PATIENT
  Age: 59 Year
  Sex: Male

DRUGS (2)
  1. ZOCOR [Suspect]
     Indication: METABOLIC DISORDER
     Route: 048
     Dates: start: 20030426, end: 20040706
  2. PERINDOPRIL ERBUMINE [Suspect]
     Indication: ESSENTIAL HYPERTENSION
     Route: 065
     Dates: start: 20030430, end: 20040706

REACTIONS (5)
  - FATIGUE [None]
  - JAUNDICE [None]
  - MALAISE [None]
  - PRURITUS [None]
  - WEIGHT DECREASED [None]
